FAERS Safety Report 10402194 (Version 2)
Quarter: 2014Q3

REPORT INFORMATION
  Report Type: Spontaneous
  Country: GB (occurrence: None)
  Receive Date: 20140819
  Receipt Date: 20140826
  Transmission Date: 20150326
  Serious: Yes (Disabling)
  Sender: FDA-Public Use
  Company Number: AUR-APL-2014-08650

PATIENT
  Age: 80 Year
  Sex: Male
  Weight: 77.4 kg

DRUGS (13)
  1. BETNOVATE C [Concomitant]
  2. BISOPROLOL (BISOPROLOL) [Concomitant]
     Active Substance: BISOPROLOL
  3. TRIMETHOPRIM (TRIMETHOPRIM) [Concomitant]
     Active Substance: TRIMETHOPRIM
  4. VENTOLIN [Concomitant]
     Active Substance: ALBUTEROL SULFATE
  5. PARACETAMOL (PARACETAMOL) [Concomitant]
     Active Substance: ACETAMINOPHEN
  6. CLENIL MODULITE (BECLOMETHASONE DIPROPIONATE) [Concomitant]
  7. LANSOPRAZOLE (LANSOPRAZOLE) [Concomitant]
     Active Substance: LANSOPRAZOLE
  8. SIMVASTATIN (SIMVASTATIN) [Concomitant]
     Active Substance: SIMVASTATIN
  9. RAMIPRIL. [Suspect]
     Active Substance: RAMIPRIL
     Indication: PRODUCT USED FOR UNKNOWN INDICATION
  10. CETIRIZINE (CETIRIZINE) [Concomitant]
     Active Substance: CETIRIZINE HYDROCHLORIDE
  11. BIMATOPROST  (BIMATOPROST) [Concomitant]
  12. ISPAGHULA HUSK (PLANTAGO OVATA HUSK) [Concomitant]
  13. PROPRANOLOL [Concomitant]
     Active Substance: PROPRANOLOL\PROPRANOLOL HYDROCHLORIDE

REACTIONS (4)
  - Diarrhoea [None]
  - Mouth ulceration [None]
  - Oral pain [None]
  - Oropharyngeal pain [None]

NARRATIVE: CASE EVENT DATE: 20140714
